FAERS Safety Report 8168630-1 (Version None)
Quarter: 2012Q1

REPORT INFORMATION
  Report Type: 
  Country: None (occurrence: None)
  Receive Date: 20120227
  Receipt Date: 20120215
  Transmission Date: 20120608
  Serious: Yes (Other)
  Sender: FDA-Public Use
  Company Number: CA-PFIZER INC-2012027662

PATIENT
  Age: 72 Year
  Sex: Female

DRUGS (10)
  1. XALATAN [Suspect]
     Indication: GLAUCOMA
     Dosage: 1 DROP IN EACH EYE ONCE DAILY
     Route: 047
     Dates: start: 19920101, end: 20110101
  2. RATIO-TECNAL [Concomitant]
     Dosage: ONCE DAILY
  3. LIPITOR [Concomitant]
     Indication: BLOOD CHOLESTEROL INCREASED
     Dosage: UNK
  4. XALATAN [Suspect]
     Dosage: 1 DROP IN EACH EYE ONCE DAILY
     Route: 047
     Dates: start: 20120201
  5. CYCLOBENZAPRINE HYDROCHLORIDE [Concomitant]
     Dosage: ONCE DAILY
  6. LATANOPROST [Suspect]
     Indication: GLAUCOMA
     Dosage: 1 DROP IN EACH EYE ONCE DAILY
     Route: 047
     Dates: start: 20110101, end: 20120201
  7. BISOPROLOL [Concomitant]
     Indication: HYPERTENSION
     Dosage: UNK
  8. MAGNESIUM [Concomitant]
     Indication: BONE DISORDER
     Dosage: UNK
  9. NITROGLYCERIN [Concomitant]
     Indication: ANGINA PECTORIS
     Dosage: UNK
     Dates: start: 20110201
  10. SCOPOLAMINE [Concomitant]
     Indication: GASTRIC DISORDER
     Dosage: UNK

REACTIONS (3)
  - HYPERSENSITIVITY [None]
  - CATARACT [None]
  - ANGINA PECTORIS [None]
